FAERS Safety Report 7278229-7 (Version None)
Quarter: 2011Q1

REPORT INFORMATION
  Report Type: 
  Country: None (occurrence: None)
  Receive Date: 20110111
  Receipt Date: 20110111
  Transmission Date: 20110831
  Serious: Yes (Other)
  Sender: FDA-Public Use
  Company Number: None

PATIENT
  Sex: Male
  Weight: 113.3993 kg

DRUGS (1)
  1. ALOCHOL PREP PADS N/A TRIAD [Suspect]
     Indication: MULTIPLE SCLEROSIS

REACTIONS (1)
  - APPLICATION SITE REACTION [None]
